FAERS Safety Report 4451852-0 (Version None)
Quarter: 2004Q3

REPORT INFORMATION
  Report Type: 
  Country: None (occurrence: None)
  Receive Date: 20040915
  Receipt Date: 20040915
  Transmission Date: 20050211
  Serious: No
  Sender: FDA-Public Use
  Company Number: None

PATIENT
  Age: 17 Month
  Sex: Female
  Weight: 12.2471 kg

DRUGS (1)
  1. MONTELUKAST SODIUM ORAL 4MG MERCK+CO., INC. [Suspect]
     Indication: ASTHMA
     Dosage: 4 MG ONCE DAILY ORAL
     Route: 048
     Dates: start: 20040726, end: 20040809

REACTIONS (1)
  - URINE ODOUR ABNORMAL [None]
